FAERS Safety Report 6683296-5 (Version None)
Quarter: 2010Q2

REPORT INFORMATION
  Report Type: 
  Country: None (occurrence: None)
  Receive Date: 20100415
  Receipt Date: 20100409
  Transmission Date: 20101027
  Serious: Yes (Hospitalization)
  Sender: FDA-Public Use
  Company Number: US-GILEAD-2010-0028358

PATIENT
  Sex: Female

DRUGS (10)
  1. LETAIRIS [Suspect]
     Indication: PULMONARY ARTERIAL HYPERTENSION
     Route: 048
     Dates: start: 20090611
  2. ASPIRIN [Concomitant]
  3. CLONIDINE [Concomitant]
  4. DILTIAZEM HCL [Concomitant]
  5. PREDNISONE [Concomitant]
  6. ADVAIR DISKUS 100/50 [Concomitant]
  7. OMEPRAZOLE [Concomitant]
  8. PLAQUENIL [Concomitant]
  9. KETOPROFEN [Concomitant]
  10. TRAMADOL HCL [Concomitant]

REACTIONS (2)
  - PLEURITIC PAIN [None]
  - PNEUMONIA [None]
